FAERS Safety Report 21007401 (Version 2)
Quarter: 2022Q3

REPORT INFORMATION
  Report Type: Spontaneous
  Country: US (occurrence: None)
  Receive Date: 20220626
  Receipt Date: 20220809
  Transmission Date: 20221026
  Serious: No
  Sender: FDA-Public Use
  Company Number: 2022A223073

PATIENT
  Age: 78 Year
  Sex: Female

DRUGS (1)
  1. FASENRA [Suspect]
     Active Substance: BENRALIZUMAB
     Indication: Asthma
     Dosage: 30MG/ML EVERY FOUR WEEKS
     Route: 058
     Dates: start: 20220509

REACTIONS (4)
  - Injection site indentation [Unknown]
  - Drug dose omission by device [Not Recovered/Not Resolved]
  - Device malfunction [Recovered/Resolved]
  - Device leakage [Unknown]

NARRATIVE: CASE EVENT DATE: 20220609
